FAERS Safety Report 13758301 (Version 1)
Quarter: 2017Q3

REPORT INFORMATION
  Report Type: Spontaneous
  Country: US (occurrence: US)
  Receive Date: 20170717
  Receipt Date: 20170717
  Transmission Date: 20171127
  Serious: No
  Sender: FDA-Public Use
  Company Number: US-PFIZER INC-2017306032

PATIENT
  Age: 67 Year
  Sex: Female

DRUGS (12)
  1. ZOVIRAX [Concomitant]
     Active Substance: ACYCLOVIR
     Dosage: UNK
  2. LEVOTHYROXIN [Concomitant]
     Active Substance: LEVOTHYROXINE
     Dosage: UNK
  3. KETOCONAZOLE. [Concomitant]
     Active Substance: KETOCONAZOLE
     Dosage: UNK
  4. NEOMYCIN-POL [Concomitant]
     Dosage: UNK (3.5-1000)
  5. ESTRACE [Concomitant]
     Active Substance: ESTRADIOL
     Dosage: UNK
  6. TRIAMCINOLON [Concomitant]
     Dosage: UNK
  7. ZOLPIDEM TARTATE [Concomitant]
     Active Substance: ZOLPIDEM TARTRATE
     Dosage: UNK
  8. XELJANZ [Suspect]
     Active Substance: TOFACITINIB CITRATE
     Indication: RHEUMATOID ARTHRITIS
     Dosage: 5 MG, 2X/DAY
     Route: 048
     Dates: start: 2015
  9. CLOBETASOL P [Concomitant]
     Dosage: UNK
  10. FLUOCINONIDE. [Concomitant]
     Active Substance: FLUOCINONIDE
     Dosage: UNK
  11. VALACYCLOVIR [Concomitant]
     Active Substance: VALACYCLOVIR HYDROCHLORIDE
     Dosage: UNK
  12. YUVAFEM [Concomitant]
     Active Substance: ESTRADIOL HEMIHYDRATE
     Dosage: UNK

REACTIONS (2)
  - Diarrhoea [Not Recovered/Not Resolved]
  - Weight increased [Not Recovered/Not Resolved]

NARRATIVE: CASE EVENT DATE: 2015
